FAERS Safety Report 5335441-1 (Version None)
Quarter: 2007Q2

REPORT INFORMATION
  Report Type: 
  Country: None (occurrence: None)
  Receive Date: 20070322
  Receipt Date: 20061130
  Transmission Date: 20071010
  Serious: No
  Sender: FDA-Public Use
  Company Number: 2006US001886

PATIENT
  Age: 86 Year
  Sex: Female

DRUGS (12)
  1. VESICARE [Suspect]
     Indication: HYPERTONIC BLADDER
     Dosage: 5 MG, ORAL
     Route: 048
     Dates: start: 20060811, end: 20060814
  2. NORVASC [Concomitant]
  3. LISINOPRIL [Concomitant]
  4. DIPYRIDAMOLE [Concomitant]
  5. HORSE CHESTNUT EXTRACT (AESCULUS HIPPOCASTANUM EXTRACT) [Concomitant]
  6. ASPIRIN [Concomitant]
  7. FUROSEMIDE (FUROSEMIDE SODIUM) [Concomitant]
  8. POTASSIUM (POTASSIUM CHLORIDE) [Concomitant]
  9. FAMOTIDINE [Concomitant]
  10. CALCIUM (ASCORBIC ACID) [Concomitant]
  11. NASONEX [Concomitant]
  12. GLUCOSAMINE SULFATE W/CHONDROITIN (CHONDROITIN SULFATE, GLUCOSAMINE SU [Concomitant]

REACTIONS (5)
  - DRY MOUTH [None]
  - FEELING HOT [None]
  - ORAL DISCOMFORT [None]
  - THIRST [None]
  - VISION BLURRED [None]
